FAERS Safety Report 11360770 (Version 1)
Quarter: 2015Q3

REPORT INFORMATION
  Report Type: Spontaneous
  Country: ES (occurrence: ES)
  Receive Date: 20150810
  Receipt Date: 20150810
  Transmission Date: 20151125
  Serious: Yes (Hospitalization)
  Sender: FDA-Public Use
  Company Number: ES-UNITED THERAPEUTICS-UNT-2015-009155

PATIENT
  Age: 6 Year
  Sex: Male
  Weight: 19 kg

DRUGS (7)
  1. SARGRAMOSTIM [Suspect]
     Active Substance: SARGRAMOSTIM
     Indication: NEUROBLASTOMA
     Dosage: 2730 ?G, UNK
     Dates: start: 20150123
  2. RETINOIC ACID [Suspect]
     Active Substance: TRETINOIN
     Indication: NEUROBLASTOMA
     Dosage: 180 MG, UNK
     Dates: start: 20150202
  3. CEFTRIAXONE                        /00672202/ [Concomitant]
     Active Substance: CEFTRIAXONE
     Indication: INFECTION
     Dosage: UNK
     Route: 041
     Dates: start: 20150724, end: 20150727
  4. UNITUXIN [Suspect]
     Active Substance: DINUTUXIMAB
     Indication: NEUROBLASTOMA
     Dosage: 54.32 MG, UNK
     Route: 041
     Dates: start: 20150126
  5. INTERLEUKIN-2 RECOMBINANT [Suspect]
     Active Substance: ALDESLEUKIN
     Indication: NEUROBLASTOMA
     Dosage: 22.8 IU, UNK
     Dates: start: 20150216
  6. CEFTRIAXONE                        /00672202/ [Concomitant]
     Active Substance: CEFTRIAXONE
     Indication: PYREXIA
     Dosage: UNK
     Route: 041
     Dates: start: 20150723, end: 20150723
  7. TOBRAMICIN [Concomitant]
     Indication: CONJUNCTIVITIS
     Dosage: 3 APPLICATIONS
     Route: 061
     Dates: start: 20150722

REACTIONS (2)
  - Gastroenteritis [Not Recovered/Not Resolved]
  - Conjunctivitis [Not Recovered/Not Resolved]

NARRATIVE: CASE EVENT DATE: 20150722
